FAERS Safety Report 9244339 (Version 1)
Quarter: 2013Q1

REPORT INFORMATION
  Report Type: Spontaneous
  Country: US (occurrence: None)
  Receive Date: 20121130
  Receipt Date: 20121130
  Transmission Date: 20140127
  Serious: Yes (Hospitalization, Other)
  Sender: FDA-Public Use
  Company Number: US201207004206

PATIENT
  Age: 60 Year
  Sex: Female
  Weight: 90.27 kg

DRUGS (4)
  1. BYDUREON [Suspect]
     Indication: TYPE 2 DIABETES MELLITUS
     Dosage: 2MG, WEEKLY (1/W), SUBCUTANEOUS
     Dates: start: 20120417, end: 201207
  2. BYETTA [Suspect]
     Dosage: 5 UG, BID, SUBCUTANEOUS
     Route: 058
     Dates: start: 200912
  3. METFORMIN (METFORMIN) [Concomitant]
  4. LEVOTHYROXINE (LEVOTHYROXINE) [Concomitant]

REACTIONS (4)
  - Renal failure acute [None]
  - Dehydration [None]
  - Nausea [None]
  - Vomiting [None]
